FAERS Safety Report 6426678-9 (Version None)
Quarter: 2009Q4

REPORT INFORMATION
  Report Type: 
  Country: None (occurrence: None)
  Receive Date: 20091104
  Receipt Date: 20091019
  Transmission Date: 20100525
  Serious: Yes (Hospitalization)
  Sender: FDA-Public Use
  Company Number: BR-AVENTIS-200810712GDDC

PATIENT
  Age: 47 Year
  Sex: Female
  Weight: 59 kg

DRUGS (20)
  1. LANTUS [Suspect]
     Route: 058
  2. LANTUS [Suspect]
     Route: 058
     Dates: end: 20080101
  3. LANTUS [Suspect]
     Route: 058
     Dates: start: 20080101
  4. LANTUS [Suspect]
     Route: 058
  5. LANTUS [Suspect]
     Route: 058
     Dates: start: 20090822
  6. NATURETTI [Suspect]
     Indication: GASTROINTESTINAL DISORDER
     Dosage: DOSE: 1-2
     Route: 048
     Dates: start: 20070701
  7. NATURETTI [Suspect]
     Dosage: DOSE QUANTITY: 5
     Route: 048
  8. OPTIPEN (INSULIN PUMP) [Suspect]
  9. AUTOPEN 24 [Suspect]
  10. LASIX [Concomitant]
     Indication: HYPERTENSION
     Route: 048
  11. CEBRALAT [Concomitant]
     Route: 048
     Dates: start: 20000101
  12. DIVELOL [Concomitant]
     Route: 048
     Dates: start: 20030101
  13. SUSTRATE [Concomitant]
     Route: 048
     Dates: start: 19980101
  14. NOCTAL                             /00425901/ [Concomitant]
     Dosage: DOSE QUANTITY: 1
     Route: 048
     Dates: start: 20070101
  15. LIPITOR [Concomitant]
     Route: 048
     Dates: start: 19980101
  16. HUMALOG [Concomitant]
     Route: 058
     Dates: start: 20030101
  17. UNKNOWN DRUG [Concomitant]
     Indication: PANIC DISORDER
     Route: 048
     Dates: start: 20070701
  18. OSCAL                              /00108001/ [Concomitant]
     Dosage: FREQUENCY: BEFORE MEALS
     Route: 048
     Dates: start: 20070701
  19. CARVEDILOL [Concomitant]
     Dosage: DOSE QUANTITY: 1
     Route: 048
  20. RIVOTRIL [Concomitant]
     Route: 048

REACTIONS (8)
  - CONDITION AGGRAVATED [None]
  - DIARRHOEA [None]
  - DRUG INEFFECTIVE [None]
  - HYPERGLYCAEMIA [None]
  - MEDICATION ERROR [None]
  - OFF LABEL USE [None]
  - PRODUCT QUALITY ISSUE [None]
  - RENAL FAILURE [None]
